FAERS Safety Report 6045799-6 (Version None)
Quarter: 2009Q1

REPORT INFORMATION
  Report Type: 
  Country: None (occurrence: None)
  Receive Date: 20090121
  Receipt Date: 20090116
  Transmission Date: 20090719
  Serious: Yes (Life-Threatening, Hospitalization)
  Sender: FDA-Public Use
  Company Number: CA-WYE-G02733908

PATIENT
  Sex: Male
  Weight: 120 kg

DRUGS (14)
  1. RAPAMUNE [Suspect]
     Indication: PROPHYLAXIS AGAINST TRANSPLANT REJECTION
     Route: 048
     Dates: start: 20031101, end: 20040601
  2. CLONIDINE [Concomitant]
  3. HYDRALAZINE HCL [Concomitant]
  4. METOLAZONE [Concomitant]
  5. SOTALOL HCL [Concomitant]
  6. K-DUR [Concomitant]
  7. ACETYLSALICYLIC ACID SRT [Concomitant]
  8. CALCIUM CARBONATE [Concomitant]
  9. COLCHICINE [Concomitant]
  10. INSULIN [Concomitant]
  11. FUROSEMIDE [Concomitant]
  12. LIPITOR [Concomitant]
  13. PREDNISONE [Concomitant]
     Indication: PROPHYLAXIS AGAINST TRANSPLANT REJECTION
     Route: 048
  14. ALLOPURINOL [Concomitant]

REACTIONS (1)
  - FACTOR VIII INHIBITION [None]
